FAERS Safety Report 6244609-1 (Version None)
Quarter: 2009Q2

REPORT INFORMATION
  Report Type: 
  Country: None (occurrence: None)
  Receive Date: 20090625
  Receipt Date: 20090615
  Transmission Date: 20091009
  Serious: Yes (Other)
  Sender: FDA-Public Use
  Company Number: US-PFIZER INC-2009228632

PATIENT
  Age: 57 Year
  Sex: Female

DRUGS (1)
  1. ZYVOX [Suspect]

REACTIONS (1)
  - COLITIS ULCERATIVE [None]
